FAERS Safety Report 9975926 (Version 1)
Quarter: 2014Q1

REPORT INFORMATION
  Report Type: Spontaneous
  Country: US (occurrence: US)
  Receive Date: 20140306
  Receipt Date: 20140306
  Transmission Date: 20141002
  Serious: No
  Sender: FDA-Public Use
  Company Number: US-PFIZER INC-2014060142

PATIENT
  Age: 47 Year
  Sex: Female
  Weight: 63.49 kg

DRUGS (5)
  1. LYRICA [Suspect]
     Indication: SCIATICA
     Dosage: 75 MG, 2X/DAY
     Route: 048
     Dates: end: 20140106
  2. LYRICA [Suspect]
     Dosage: 75 MG, 3X/DAY
     Route: 048
     Dates: start: 20140106, end: 2014
  3. PERCOCET [Concomitant]
     Indication: NEURALGIA
     Dosage: UNK
  4. MECLIZINE [Concomitant]
     Indication: VERTIGO
     Dosage: UNK
  5. TOPAMAX [Concomitant]
     Indication: MIGRAINE PROPHYLAXIS
     Dosage: UNK

REACTIONS (2)
  - Sciatica [Unknown]
  - Accident [Unknown]
